FAERS Safety Report 15673278 (Version 1)
Quarter: 2018Q4

REPORT INFORMATION
  Report Type: Spontaneous
  Country: FR (occurrence: FR)
  Receive Date: 20181129
  Receipt Date: 20181129
  Transmission Date: 20190205
  Serious: Yes (Death)
  Sender: FDA-Public Use
  Company Number: PHHY2018FR169925

PATIENT
  Age: 37 Year
  Sex: Male
  Weight: 74 kg

DRUGS (3)
  1. ENTYVIO [Interacting]
     Active Substance: VEDOLIZUMAB
     Indication: GRAFT VERSUS HOST DISEASE IN GASTROINTESTINAL TRACT
     Dosage: UNK (CF COMMENTAIRE)
     Route: 042
  2. HYDROCORTISONE. [Interacting]
     Active Substance: HYDROCORTISONE
     Indication: ENDOCRINE DISORDER PROPHYLAXIS
     Dosage: 20 MG, QD
     Route: 048
     Dates: start: 20180822, end: 20181015
  3. PREDNISONE. [Suspect]
     Active Substance: PREDNISONE
     Indication: GRAFT VERSUS HOST DISEASE IN GASTROINTESTINAL TRACT
     Dosage: 5 MG, QD
     Route: 048
     Dates: start: 20180725, end: 20181015

REACTIONS (2)
  - Drug interaction [Fatal]
  - Septic shock [Fatal]

NARRATIVE: CASE EVENT DATE: 20181015
